FAERS Safety Report 6132369-4 (Version None)
Quarter: 2009Q1

REPORT INFORMATION
  Report Type: 
  Country: None (occurrence: None)
  Receive Date: 20090325
  Receipt Date: 20090317
  Transmission Date: 20090719
  Serious: Yes (Other)
  Sender: FDA-Public Use
  Company Number: PHEH2009US02767

PATIENT
  Sex: Female

DRUGS (7)
  1. EXFORGE [Suspect]
     Dosage: 5/160 MG
     Dates: start: 20081203
  2. JANUMET [Concomitant]
  3. METOPROLOL [Concomitant]
     Dosage: 50 MG
  4. FUROSEMIDE [Concomitant]
     Dosage: 20 MG
  5. NEXIUM [Concomitant]
     Dosage: 40 MG
  6. VYTORIN [Concomitant]
  7. ASPIRIN [Concomitant]

REACTIONS (6)
  - GAIT DISTURBANCE [None]
  - INJURY [None]
  - LIMB DISCOMFORT [None]
  - MUSCLE DISORDER [None]
  - OEDEMA PERIPHERAL [None]
  - PARAESTHESIA [None]
